FAERS Safety Report 7880180-6 (Version None)
Quarter: 2011Q4

REPORT INFORMATION
  Report Type: 
  Country: None (occurrence: None)
  Receive Date: 20111101
  Receipt Date: 20111026
  Transmission Date: 20120403
  Serious: No
  Sender: FDA-Public Use
  Company Number: US-PFIZER INC-2011261834

PATIENT
  Sex: Female
  Weight: 55.3 kg

DRUGS (1)
  1. ESTRING [Suspect]
     Indication: URINARY INCONTINENCE
     Dosage: 2 MG, UNK
     Route: 067
     Dates: start: 20090101

REACTIONS (1)
  - DRUG INEFFECTIVE [None]
